FAERS Safety Report 6957941 (Version 2)
Quarter: 2012Q4

REPORT INFORMATION
  Report Type: Report from Study
  Country: US (occurrence: US)
  Receive Date: 20090401
  Receipt Date: 20121210
  Transmission Date: 20130627
  Serious: Yes (Hospitalization)
  Sender: FDA-Public Use
  Company Number: US-ROCHE-617797

PATIENT
  Age: 73 Year
  Sex: Female
  Weight: 93 kg

DRUGS (1)
  1. CAPECITABINE [Suspect]
     Indication: BONE NEOPLASM MALIGNANT
     Dosage: 2ND INDICATION: BREAST CANCER. 14 DAYS OF 21 DAYS
     Route: 048

REACTIONS (5)
  - Clostridium difficile colitis [Recovered/Resolved]
  - Dehydration [Unknown]
  - Diarrhoea [Recovered/Resolved]
  - Back pain [Unknown]
  - Pain in extremity [Unknown]
